FAERS Safety Report 5099697-5 (Version None)
Quarter: 2006Q3

REPORT INFORMATION
  Report Type: 
  Country: None (occurrence: None)
  Receive Date: 20060908
  Receipt Date: 20060830
  Transmission Date: 20061208
  Serious: Yes (Death)
  Sender: FDA-Public Use
  Company Number: FR-ROCHE-461344

PATIENT
  Age: 88 Year
  Sex: Female

DRUGS (5)
  1. RIVOTRIL [Suspect]
     Indication: ANXIETY
     Route: 048
     Dates: start: 20060406, end: 20060411
  2. INIPOMP [Suspect]
     Indication: DRUG USE FOR UNKNOWN INDICATION
     Route: 048
     Dates: start: 20060301
  3. ASPIRIN [Suspect]
     Indication: DRUG USE FOR UNKNOWN INDICATION
     Route: 048
     Dates: start: 20060221
  4. LASILIX [Suspect]
     Indication: DRUG USE FOR UNKNOWN INDICATION
     Route: 048
     Dates: start: 20060326
  5. PRIMPERAN TAB [Suspect]
     Indication: DRUG USE FOR UNKNOWN INDICATION
     Route: 065
     Dates: start: 20060329

REACTIONS (5)
  - ANXIETY [None]
  - BACTERIAL INFECTION [None]
  - NEUTROPENIA [None]
  - PULMONARY EMBOLISM [None]
  - SYSTEMIC INFLAMMATORY RESPONSE SYNDROME [None]
